FAERS Safety Report 21442282 (Version 1)
Quarter: 2022Q4

REPORT INFORMATION
  Report Type: Spontaneous
  Country: US (occurrence: US)
  Receive Date: 20221011
  Receipt Date: 20221011
  Transmission Date: 20230113
  Serious: No
  Sender: FDA-Public Use
  Company Number: US-Sprout Pharmaceuticals, Inc.-2021SP000307

PATIENT
  Age: 50 Year
  Sex: Female

DRUGS (7)
  1. ADDYI [Suspect]
     Active Substance: FLIBANSERIN
     Indication: Libido decreased
     Route: 048
     Dates: start: 202109, end: 20211029
  2. DOXYCYCLINE [Concomitant]
     Active Substance: DOXYCYCLINE
     Indication: Acne
  3. MELOXICAM [Concomitant]
     Active Substance: MELOXICAM
     Indication: Arthralgia
  4. UNISOM SLEEPTABS [Concomitant]
     Active Substance: DOXYLAMINE SUCCINATE
     Indication: Sleep disorder
  5. BIOMEDICAL HORMONES [Concomitant]
     Indication: Hormone replacement therapy
     Dates: start: 2015
  6. VITAMINS [Concomitant]
     Active Substance: VITAMINS
     Indication: Supplementation therapy
  7. CALCIUM [Concomitant]
     Active Substance: CALCIUM
     Indication: Supplementation therapy

REACTIONS (9)
  - Dizziness [Recovered/Resolved]
  - Euphoric mood [Recovered/Resolved]
  - Visual impairment [Recovered/Resolved]
  - Vomiting [Recovered/Resolved]
  - Influenza like illness [Recovered/Resolved]
  - Fatigue [Recovered/Resolved]
  - Nausea [Recovered/Resolved]
  - Drug ineffective [Unknown]
  - Intentional product use issue [Recovered/Resolved]

NARRATIVE: CASE EVENT DATE: 20210901
